FAERS Safety Report 8142909-1 (Version None)
Quarter: 2012Q1

REPORT INFORMATION
  Report Type: 
  Country: None (occurrence: None)
  Receive Date: 20120217
  Receipt Date: 20120206
  Transmission Date: 20120608
  Serious: Yes (Other)
  Sender: FDA-Public Use
  Company Number: IE-BIOGENIDEC-2011BI011253

PATIENT
  Age: 26 Year
  Sex: Female

DRUGS (6)
  1. ZIMOVANE [Concomitant]
  2. AVONEX [Suspect]
     Indication: MULTIPLE SCLEROSIS
     Route: 030
     Dates: start: 20100301, end: 20110314
  3. ORAL STEROID TREATMENT [Concomitant]
     Indication: MUSCULAR WEAKNESS
     Route: 048
     Dates: start: 20110301
  4. FOLIC ACID [Concomitant]
  5. LYRICA [Concomitant]
  6. LOSAMEL [Concomitant]

REACTIONS (2)
  - PREGNANCY [None]
  - CAESAREAN SECTION [None]
